FAERS Safety Report 24202093 (Version 1)
Quarter: 2024Q3

REPORT INFORMATION
  Report Type: Spontaneous
  Country: PH (occurrence: PH)
  Receive Date: 20240812
  Receipt Date: 20240812
  Transmission Date: 20241017
  Serious: Yes (Hospitalization)
  Sender: ROCHE
  Company Number: PH-BoehringerIngelheim-2024-BI-044683

PATIENT
  Age: 68 Year
  Sex: Female

DRUGS (1)
  1. ALTEPLASE [Suspect]
     Active Substance: ALTEPLASE
     Indication: Product used for unknown indication
     Dosage: FORM STRENGTH: 50 MILLIGRAM
     Route: 065
     Dates: start: 20240726

REACTIONS (1)
  - Chills [Unknown]

NARRATIVE: CASE EVENT DATE: 20240726
